FAERS Safety Report 14115747 (Version 1)
Quarter: 2017Q4

REPORT INFORMATION
  Report Type: Spontaneous
  Country: GR (occurrence: GR)
  Receive Date: 20171023
  Receipt Date: 20171023
  Transmission Date: 20180321
  Serious: Yes (Other)
  Sender: FDA-Public Use
  Company Number: GR-UCBSA-2017035040

PATIENT
  Age: 32 Year
  Sex: Female

DRUGS (6)
  1. BRIVARACETAM [Suspect]
     Active Substance: BRIVARACETAM
     Indication: PARTIAL SEIZURES WITH SECONDARY GENERALISATION
     Dosage: 25 MG, 2X/DAY (BID)
     Route: 048
     Dates: start: 2017, end: 2017
  2. BRIVARACETAM [Suspect]
     Active Substance: BRIVARACETAM
     Dosage: 50 MG, 2X/DAY (BID)
     Route: 048
     Dates: start: 2017, end: 20170827
  3. DEPAKINE [Suspect]
     Active Substance: VALPROATE SODIUM
     Dosage: 50MG PER DAY
     Dates: start: 20170921, end: 20171009
  4. BRIVARACETAM [Suspect]
     Active Substance: BRIVARACETAM
     Dosage: 50 MG, 2X/DAY (BID)
     Route: 048
     Dates: start: 20170921, end: 20171009
  5. BRIVARACETAM [Suspect]
     Active Substance: BRIVARACETAM
     Dosage: 25 MG, 2X/DAY (BID)
     Route: 048
     Dates: start: 20170828, end: 20170920
  6. DEPAKINE [Suspect]
     Active Substance: VALPROATE SODIUM
     Indication: PARTIAL SEIZURES
     Dosage: UNK

REACTIONS (4)
  - Excessive sexual fantasies [Recovered/Resolved]
  - Seizure [Recovered/Resolved]
  - Libido increased [Recovered/Resolved]
  - Vomiting [Unknown]

NARRATIVE: CASE EVENT DATE: 2017
